FAERS Safety Report 17174408 (Version 1)
Quarter: 2019Q4

REPORT INFORMATION
  Report Type: Spontaneous
  Country: US (occurrence: US)
  Receive Date: 20191126
  Receipt Date: 20191126
  Transmission Date: 20200122
  Serious: No
  Sender: FDA-Public Use
  Company Number: None

PATIENT
  Age: 95 Year
  Sex: Male
  Weight: 62.14 kg

DRUGS (7)
  1. CALCIUM [Concomitant]
     Active Substance: CALCIUM
  2. VESICARE [Suspect]
     Active Substance: SOLIFENACIN SUCCINATE
     Indication: HYPERTONIC BLADDER
     Dosage: ?          QUANTITY:60 MG MILLIGRAM(S);?
     Route: 048
     Dates: start: 201701, end: 201711
  3. VITAMINS [Concomitant]
     Active Substance: VITAMINS
  4. POTASSIUM [Concomitant]
     Active Substance: POTASSIUM
  5. AMLODIPINE [Concomitant]
     Active Substance: AMLODIPINE BESYLATE
  6. POTASSIUM [Concomitant]
     Active Substance: POTASSIUM
  7. CENTRUM - MULTIVITAMIN [Concomitant]

REACTIONS (10)
  - Dry eye [None]
  - Faecaloma [None]
  - Treatment failure [None]
  - Pruritus [None]
  - Dehydration [None]
  - Choking [None]
  - Epistaxis [None]
  - Constipation [None]
  - Decreased appetite [None]
  - Weight decreased [None]
